FAERS Safety Report 8181732-9 (Version None)
Quarter: 2012Q1

REPORT INFORMATION
  Report Type: 
  Country: None (occurrence: None)
  Receive Date: 20120302
  Receipt Date: 20111117
  Transmission Date: 20120608
  Serious: No
  Sender: FDA-Public Use
  Company Number: US-AMGEN-USASP2011060892

PATIENT
  Age: 72 Year
  Sex: Male

DRUGS (6)
  1. METOPROLOL SUCCINATE [Concomitant]
  2. LISINOPRIL [Concomitant]
  3. NPLATE [Suspect]
     Indication: THROMBOCYTOPENIC PURPURA
     Dosage: UNK UNK, QWK
     Dates: start: 20110901
  4. PREDNISONE TAB [Concomitant]
     Dosage: 40 MG, QD
  5. SIMVASTATIN [Concomitant]
  6. CITRIC ACID [Concomitant]

REACTIONS (4)
  - FEELING HOT [None]
  - PAIN IN EXTREMITY [None]
  - PLANTAR ERYTHEMA [None]
  - TINNITUS [None]
